FAERS Safety Report 6047848-8 (Version None)
Quarter: 2009Q1

REPORT INFORMATION
  Report Type: 
  Country: None (occurrence: None)
  Receive Date: 20090123
  Receipt Date: 20090114
  Transmission Date: 20090719
  Serious: Yes (Hospitalization, Other)
  Sender: FDA-Public Use
  Company Number: SE-JNJFOC-20081004985

PATIENT
  Age: 68 Year
  Sex: Male

DRUGS (11)
  1. REMICADE [Suspect]
     Indication: RHEUMATOID ARTHRITIS
     Route: 042
  2. FLUDENT [Concomitant]
  3. SALIVIN [Concomitant]
  4. METOPROLOL [Concomitant]
  5. SINCON [Concomitant]
     Route: 047
  6. VISCOTEARS [Concomitant]
  7. FOLACIN [Concomitant]
  8. ALVEDON [Concomitant]
  9. PROPAVAN [Concomitant]
  10. TRAMADOL HCL [Concomitant]
     Dosage: DOSE STATED AS 50-200 MG
  11. METHOTREXATE [Concomitant]
     Route: 048

REACTIONS (3)
  - ABDOMINAL PAIN [None]
  - AORTIC DILATATION [None]
  - ATRIAL FIBRILLATION [None]
